FAERS Safety Report 5796908-5 (Version None)
Quarter: 2008Q2

REPORT INFORMATION
  Report Type: 
  Country: None (occurrence: None)
  Receive Date: 20080627
  Receipt Date: 20080612
  Transmission Date: 20081010
  Serious: Yes (Hospitalization)
  Sender: FDA-Public Use
  Company Number: 6043608

PATIENT
  Age: 83 Year
  Sex: Male

DRUGS (16)
  1. BISOPROLOL FUMARATE [Suspect]
     Indication: DRUG USE FOR UNKNOWN INDICATION
     Dosage: 1 DOSAGE FORMS -
     Route: 048
  2. PREVISCAN (FLUINDIONE) [Suspect]
     Indication: DRUG USE FOR UNKNOWN INDICATION
     Dosage: 0.75 MG (0.75 MG, 1 D)
     Route: 048
  3. ENANTONE (LEUPROELIN) [Suspect]
     Indication: DRUG USE FOR UNKNOWN INDICATION
     Dosage: 1 DOAGE FORMS (1 DOAGE FORMS, 1 TRIMESTER)
     Route: 058
     Dates: start: 20080101
  4. RAMIPRIL [Suspect]
     Indication: DRUG USE FOR UNKNOWN INDICATION
     Dosage: 1 DOSAGE FORMS (1 DOSAGE FORMS, 1 D)
     Route: 048
  5. FUROSEMIDE [Suspect]
     Indication: DRUG USE FOR UNKNOWN INDICATION
     Dosage: 1 DOSAGE FORMS (1 DOSAGE FORMS, 1 D)
     Route: 048
  6. KARDEGIC (75 MG, POWDER FOR ORAL SUSPENSION) (ACETYLSALICYLATE LYSINE) [Suspect]
     Indication: DRUG USE FOR UNKNOWN INDICATION
     Dosage: 1 DOSAGE FORMS (1 DOSAGE FORMS, 1D)
     Route: 048
  7. TAMSULOSIN HCL [Suspect]
     Indication: DRUG USE FOR UNKNOWN INDICATION
     Dosage: 1 DOSAGE FORMS (1 DOSAGE FORMS, 1 D)
     Route: 048
  8. ZOLOFT [Suspect]
     Indication: DRUG USE FOR UNKNOWN INDICATION
     Dosage: 1 DOSAGE FORMS (1 DOSAGE FORMS, 1D)
     Route: 048
  9. ESOMEPRAZOLE MAGNESIUM [Suspect]
     Indication: DRUG USE FOR UNKNOWN INDICATION
     Dosage: ORAL
     Route: 048
  10. PRAVASTATIN [Concomitant]
  11. ALDACTONE [Concomitant]
  12. LEXOMIL (BROMAZEPAM) [Concomitant]
  13. ZOPICLONE [Concomitant]
  14. TRANSILANE (POTASSIUM BICARBONATE, PSYLLIUM HYDROPHOLIC MUCILLOID) [Concomitant]
  15. CARBOSYLANE (DIMETICONE, CHARCOAL, ACTIVATED) [Concomitant]
  16. DEBRIDATE (TRIMEBUTINE MALEATE) [Concomitant]

REACTIONS (1)
  - TOXIC SKIN ERUPTION [None]
